FAERS Safety Report 8815844 (Version 2)
Quarter: 2013Q3

REPORT INFORMATION
  Report Type: Spontaneous
  Country: US (occurrence: US)
  Receive Date: 20120928
  Receipt Date: 20130814
  Transmission Date: 20140515
  Serious: Yes (Hospitalization, Other)
  Sender: FDA-Public Use
  Company Number: US-009507513-1209USA010316

PATIENT
  Sex: Female
  Weight: 85.26 kg

DRUGS (7)
  1. FOSAMAX [Suspect]
     Indication: OSTEOPOROSIS
     Dosage: 70 MG, QW
     Route: 048
     Dates: start: 20030805, end: 201106
  2. ALENDRONATE SODIUM [Suspect]
     Dosage: 70 MG, UNK
  3. LEVOTHYROXINE SODIUM [Concomitant]
     Indication: HYPOTHYROIDISM
     Dosage: 50-100 MICROGRAM, QD
     Route: 048
     Dates: start: 2003
  4. LESCOL [Concomitant]
     Indication: BLOOD CHOLESTEROL INCREASED
     Dosage: 20 MG, HS
  5. SYNTHROID [Concomitant]
     Indication: HYPOTHYROIDISM
     Dosage: 50 MICROGRAM, QD
  6. SUPARTZ [Concomitant]
     Indication: OSTEOARTHRITIS
  7. FLUTICASONE PROPIONATE [Concomitant]
     Indication: HYPERSENSITIVITY
     Dosage: 50 MICROGRAM, HS
     Route: 045

REACTIONS (33)
  - Intramedullary rod insertion [Unknown]
  - Non-small cell lung cancer [Unknown]
  - Non-Hodgkin^s lymphoma [Unknown]
  - Lung lobectomy [Unknown]
  - Femur fracture [Unknown]
  - Femur fracture [Unknown]
  - Ankle fracture [Unknown]
  - Biopsy bone marrow [Unknown]
  - Osteopenia [Unknown]
  - Foot fracture [Recovering/Resolving]
  - Paraesthesia [Unknown]
  - Joint effusion [Unknown]
  - Dyspnoea [Unknown]
  - Chronic obstructive pulmonary disease [Not Recovered/Not Resolved]
  - Peripheral arterial occlusive disease [Unknown]
  - Aortic aneurysm [Unknown]
  - Hyperthyroidism [Unknown]
  - Sinus tachycardia [Unknown]
  - Hyperglycaemia [Unknown]
  - Dyslipidaemia [Unknown]
  - Anaemia postoperative [Unknown]
  - Acute sinusitis [Unknown]
  - Asthma [Unknown]
  - Hypertensive heart disease [Unknown]
  - Chest pain [Unknown]
  - Chest pain [Unknown]
  - Bronchitis chronic [Not Recovered/Not Resolved]
  - Foot fracture [Unknown]
  - Pain [Unknown]
  - Joint effusion [Unknown]
  - Bronchitis bacterial [Not Recovered/Not Resolved]
  - Pulmonary mass [Unknown]
  - Otitis media acute [Unknown]
